FAERS Safety Report 5151912-5 (Version None)
Quarter: 2006Q4

REPORT INFORMATION
  Report Type: 
  Country: None (occurrence: None)
  Receive Date: 20061031
  Receipt Date: 20061020
  Transmission Date: 20070319
  Serious: Yes (Hospitalization, Other)
  Sender: FDA-Public Use
  Company Number: 2006BH014211

PATIENT
  Age: 52 Year
  Sex: Male

DRUGS (2)
  1. FEIBA VH IMMUNO [Suspect]
     Indication: HAEMORRHAGE
     Dosage: 3000 UNITS; IV
     Route: 042
  2. NOVOSEVEN [Concomitant]

REACTIONS (3)
  - HAEMOLYTIC URAEMIC SYNDROME [None]
  - RENAL DISORDER [None]
  - THROMBOSIS [None]
